FAERS Safety Report 9132516 (Version 2)
Quarter: 2013Q2

REPORT INFORMATION
  Report Type: Report from Study
  Country: US (occurrence: US)
  Receive Date: 20130301
  Receipt Date: 20130401
  Transmission Date: 20140414
  Serious: Yes (Life-Threatening, Hospitalization)
  Sender: FDA-Public Use
  Company Number: US-VIIV HEALTHCARE LIMITED-B0871302A

PATIENT
  Age: 57 Year
  Sex: Male
  Weight: 94.3 kg

DRUGS (23)
  1. SELZENTRY [Suspect]
     Indication: HIV INFECTION
     Dosage: 150MG TWICE PER DAY
     Route: 048
     Dates: start: 20070601
  2. ELVITEGRAVIR [Suspect]
     Indication: HIV INFECTION
     Dosage: 150MG PER DAY
     Route: 048
     Dates: start: 20100731
  3. NORVIR [Suspect]
     Indication: HIV INFECTION
     Dosage: 100MG TWICE PER DAY
     Route: 048
     Dates: start: 20070601
  4. PREZISTA [Suspect]
     Indication: HIV INFECTION
     Dosage: 600MG TWICE PER DAY
     Route: 048
     Dates: start: 20070601
  5. VIREAD [Suspect]
     Dosage: 300MG WEEKLY
     Route: 048
     Dates: start: 20090611
  6. EMTRIVA [Suspect]
     Indication: HIV INFECTION
     Route: 048
     Dates: start: 20090611
  7. TYLENOL [Suspect]
     Route: 048
  8. GABAPENTIN [Concomitant]
     Dates: start: 200504
  9. BACTRIM [Concomitant]
     Dates: start: 20030317
  10. MOMETASONE [Concomitant]
     Dates: start: 200512
  11. KETOCONAZOLE [Concomitant]
     Dates: start: 20030317
  12. FAMVIR [Concomitant]
     Dates: start: 20021217
  13. NEPRO [Concomitant]
     Dates: start: 200802
  14. LAMISIL [Concomitant]
     Dates: start: 20070727
  15. VICODIN [Concomitant]
     Dates: start: 20070914
  16. EPO [Concomitant]
  17. ALKA-SELTZER [Concomitant]
     Dates: start: 20080429
  18. FUROSEMIDE [Concomitant]
     Dates: start: 20090909
  19. FOLIC ACID [Concomitant]
     Dates: start: 20121031
  20. CYANOCOBALAMIN [Concomitant]
     Dates: start: 20120823
  21. HECTOROL [Concomitant]
     Dates: start: 20120827
  22. ZOVIRAX [Concomitant]
     Dates: start: 20111026
  23. LASIX [Concomitant]

REACTIONS (2)
  - Pneumonia [Recovered/Resolved]
  - Renal failure chronic [Not Recovered/Not Resolved]
